FAERS Safety Report 11595726 (Version 1)
Quarter: 2015Q4

REPORT INFORMATION
  Report Type: Spontaneous
  Country: US (occurrence: None)
  Receive Date: 20151005
  Receipt Date: 20151005
  Transmission Date: 20160304
  Serious: Yes (Other)
  Sender: FDA-Public Use
  Company Number: None

PATIENT
  Age: 75 Year
  Sex: Female
  Weight: 67 kg

DRUGS (3)
  1. ASCORBIC ACID. [Concomitant]
     Active Substance: ASCORBIC ACID
  2. TEMOZOLOMIDE 140MG TEVA [Suspect]
     Active Substance: TEMOZOLOMIDE
     Indication: GLIOBLASTOMA
     Route: 048
     Dates: start: 20150630, end: 20150807
  3. ASPIRIN 81MG [Concomitant]
     Active Substance: ASPIRIN

REACTIONS (5)
  - Hepatic cirrhosis [None]
  - Hepatitis acute [None]
  - Alanine aminotransferase increased [None]
  - Drug-induced liver injury [None]
  - Aspartate aminotransferase increased [None]

NARRATIVE: CASE EVENT DATE: 20150807
